FAERS Safety Report 9030211 (Version 2)
Quarter: 2013Q1

REPORT INFORMATION
  Report Type: Spontaneous
  Country: DE (occurrence: DE)
  Receive Date: 20130125
  Receipt Date: 20130327
  Transmission Date: 20140127
  Serious: Yes (Hospitalization)
  Sender: FDA-Public Use
  Company Number: DE-AMGEN-DEUSP2013005190

PATIENT
  Age: 68 Year
  Sex: Female
  Weight: 94 kg

DRUGS (3)
  1. ENBREL [Suspect]
     Indication: ANKYLOSING SPONDYLITIS
     Dosage: 50 MG, WEEKLY
     Route: 058
     Dates: start: 20101220, end: 201212
  2. ARCOXIA [Concomitant]
     Dosage: UNK
  3. STILNOX [Concomitant]
     Dosage: UNK

REACTIONS (1)
  - Abdominal neoplasm [Unknown]
